FAERS Safety Report 9194041 (Version 2)
Quarter: 2013Q1

REPORT INFORMATION
  Report Type: Spontaneous
  Country: US (occurrence: US)
  Receive Date: 20130327
  Receipt Date: 20130329
  Transmission Date: 20140127
  Serious: Yes (Hospitalization)
  Sender: FDA-Public Use
  Company Number: US-BAXTER-2013BAX010947

PATIENT
  Age: 64 Year
  Sex: Female

DRUGS (1)
  1. DIANEAL LOW CALCIUM [Suspect]
     Indication: PERITONEAL DIALYSIS
     Route: 033

REACTIONS (2)
  - Cholelithiasis [Recovering/Resolving]
  - Gallbladder disorder [Recovering/Resolving]
